FAERS Safety Report 16117316 (Version 1)
Quarter: 2019Q1

REPORT INFORMATION
  Report Type: Spontaneous
  Country: US (occurrence: US)
  Receive Date: 20190221
  Receipt Date: 20190221
  Transmission Date: 20190418
  Serious: No
  Sender: FDA-Public Use
  Company Number: None

PATIENT
  Age: 39 Year
  Sex: Female
  Weight: 63 kg

DRUGS (8)
  1. EMGALITY [Suspect]
     Active Substance: GALCANEZUMAB-GNLM
  2. COMPAZENE [Concomitant]
  3. IMITREX [Concomitant]
     Active Substance: SUMATRIPTAN SUCCINATE
  4. FIORICET [Concomitant]
     Active Substance: ACETAMINOPHEN\BUTALBITAL\CAFFEINE
  5. MAGNESIUM [Concomitant]
     Active Substance: MAGNESIUM
  6. TORADOL [Concomitant]
     Active Substance: KETOROLAC TROMETHAMINE
  7. AIMOVIG [Suspect]
     Active Substance: ERENUMAB-AOOE
     Indication: MIGRAINE
     Dates: start: 20180623, end: 20190217
  8. INDOCIN [Concomitant]
     Active Substance: INDOMETHACIN

REACTIONS (6)
  - Anxiety [None]
  - Thinking abnormal [None]
  - Depression [None]
  - Panic attack [None]
  - Depressed mood [None]
  - Hyperventilation [None]

NARRATIVE: CASE EVENT DATE: 20181201
